FAERS Safety Report 9136686 (Version 2)
Quarter: 2013Q1

REPORT INFORMATION
  Report Type: Spontaneous
  Country: US (occurrence: US)
  Receive Date: 20130304
  Receipt Date: 20130322
  Transmission Date: 20140127
  Serious: No
  Sender: FDA-Public Use
  Company Number: US-B.I. PHARMACEUTICALS,INC./RIDGEFIELD-2013-BI-05011BP

PATIENT
  Age: 64 None
  Sex: Female
  Weight: 81 kg

DRUGS (13)
  1. SPIRIVA [Suspect]
     Indication: CHRONIC OBSTRUCTIVE PULMONARY DISEASE
     Dosage: 18 MCG
     Route: 055
     Dates: start: 2010
  2. SIMVASTATIN [Concomitant]
     Indication: BLOOD CHOLESTEROL INCREASED
     Route: 048
  3. RANEXA [Concomitant]
     Route: 048
  4. ISOSORBIDE [Concomitant]
     Route: 048
  5. CLONIDINE [Concomitant]
     Route: 048
  6. TRICOR [Concomitant]
     Route: 048
  7. INSULIN [Concomitant]
     Indication: DIABETES MELLITUS
     Route: 058
  8. PLAVIX [Concomitant]
     Route: 048
  9. LISINOPRIL [Concomitant]
     Indication: HYPERTENSION
  10. ASPIRIN [Concomitant]
     Route: 048
  11. ADVAIR [Concomitant]
     Route: 055
  12. HYDRALAZINE [Concomitant]
     Route: 048
  13. METOPROLOL [Concomitant]
     Route: 048

REACTIONS (7)
  - Laryngitis [Not Recovered/Not Resolved]
  - Upper respiratory tract infection [Not Recovered/Not Resolved]
  - Fatigue [Not Recovered/Not Resolved]
  - Haemoglobin decreased [Not Recovered/Not Resolved]
  - Product quality issue [Recovered/Resolved]
  - Product quality issue [Recovered/Resolved]
  - Product quality issue [Recovered/Resolved]
